FAERS Safety Report 5718776-X (Version None)
Quarter: 2008Q2

REPORT INFORMATION
  Report Type: 
  Country: None (occurrence: None)
  Receive Date: 20080423
  Receipt Date: 20080410
  Transmission Date: 20081010
  Serious: No
  Sender: FDA-Public Use
  Company Number: 2008BI008481

PATIENT
  Age: 34 Year
  Sex: Male
  Weight: 67 kg

DRUGS (2)
  1. TYSABRI [Suspect]
     Indication: MULTIPLE SCLEROSIS
     Dosage: 300 MG; QM; IV
     Route: 042
     Dates: start: 20070817, end: 20080222
  2. PREDNISOLONE [Concomitant]

REACTIONS (2)
  - STRESS [None]
  - TACHYARRHYTHMIA [None]
